FAERS Safety Report 6446944-0 (Version None)
Quarter: 2009Q4

REPORT INFORMATION
  Report Type: 
  Country: None (occurrence: None)
  Receive Date: 20091119
  Receipt Date: 20091007
  Transmission Date: 20100525
  Serious: Yes (Other)
  Sender: FDA-Public Use
  Company Number: US-MERCK-0908USA04732

PATIENT
  Age: 51 Year
  Sex: Female
  Weight: 52 kg

DRUGS (6)
  1. IVEMEND [Suspect]
     Indication: PROPHYLAXIS OF NAUSEA AND VOMITING
     Route: 042
     Dates: start: 20090604, end: 20090604
  2. COMPAZINE [Concomitant]
     Route: 065
  3. PROTONIX [Concomitant]
     Route: 065
  4. HYDROCODONE [Concomitant]
     Route: 065
  5. PROMETHAZINE [Concomitant]
     Route: 065
  6. ONDANSETRON [Concomitant]
     Route: 065

REACTIONS (3)
  - HYPOTENSION [None]
  - TACHYCARDIA [None]
  - THROAT TIGHTNESS [None]
